FAERS Safety Report 25427979 (Version 1)
Quarter: 2025Q2

REPORT INFORMATION
  Report Type: Spontaneous
  Country: CN (occurrence: CN)
  Receive Date: 20250612
  Receipt Date: 20250612
  Transmission Date: 20250717
  Serious: Yes (Hospitalization, Other)
  Sender: PFIZER
  Company Number: CN-PFIZER INC-PV202500069831

PATIENT
  Age: 61 Year
  Sex: Male
  Weight: 60 kg

DRUGS (6)
  1. LINEZOLID [Suspect]
     Active Substance: LINEZOLID
     Indication: Pulmonary tuberculosis
     Dosage: 1 DF, 1X/DAY
     Route: 048
     Dates: start: 20241216, end: 20250328
  2. BEDAQUILINE FUMARATE [Suspect]
     Active Substance: BEDAQUILINE FUMARATE
     Indication: Pulmonary tuberculosis
     Dosage: 2 DF, 3X/DAY
     Route: 048
     Dates: start: 20241216, end: 20250328
  3. CYCLOSERINE [Suspect]
     Active Substance: CYCLOSERINE
     Indication: Pulmonary tuberculosis
     Dosage: 1 DF, 3X/DAY
     Route: 048
     Dates: start: 20241216, end: 20250328
  4. CLOFAZIMINE [Suspect]
     Active Substance: CLOFAZIMINE
     Indication: Pulmonary tuberculosis
     Dosage: 2 DF, 1X/DAY
     Route: 048
     Dates: start: 20241216, end: 20250328
  5. LEVOFLOXACIN [Suspect]
     Active Substance: LEVOFLOXACIN
     Indication: Pulmonary tuberculosis
     Dosage: 1 DF, 1X/DAY
     Route: 048
     Dates: start: 20241216, end: 20250328
  6. VITAMIN B6 [Concomitant]
     Active Substance: PYRIDOXINE HYDROCHLORIDE
     Indication: Pulmonary tuberculosis
     Dosage: 5 DF, 3X/DAY
     Route: 048
     Dates: start: 20241216, end: 20250328

REACTIONS (2)
  - Long QT syndrome [Recovering/Resolving]
  - Asthenia [Recovering/Resolving]

NARRATIVE: CASE EVENT DATE: 20250328
